FAERS Safety Report 9066827 (Version 1)
Quarter: 2013Q1

REPORT INFORMATION
  Report Type: Spontaneous
  Country: GB (occurrence: GB)
  Receive Date: 20130214
  Receipt Date: 20130214
  Transmission Date: 20140127
  Serious: Yes (Hospitalization)
  Sender: FDA-Public Use
  Company Number: GB-GLAXOSMITHKLINE-B0866683A

PATIENT
  Sex: Male

DRUGS (7)
  1. ACICLOVIR [Suspect]
     Indication: PROPHYLAXIS
     Dosage: 400MG TWICE PER DAY
     Route: 065
  2. PHENYTOIN [Concomitant]
     Dosage: 350MG PER DAY
  3. LANSOPRAZOLE [Concomitant]
     Dosage: 30MG PER DAY
  4. PREDNISOLONE [Concomitant]
     Dosage: 5MG IN THE MORNING
  5. BETAHISTINE [Concomitant]
     Dosage: 16MG THREE TIMES PER DAY
  6. LOSARTAN [Concomitant]
     Dosage: 50MG IN THE MORNING
  7. DIGOXIN [Concomitant]
     Dosage: 125MCG PER DAY

REACTIONS (2)
  - Subdural haematoma [Recovered/Resolved]
  - Alanine aminotransferase increased [Unknown]
